FAERS Safety Report 6402538-4 (Version None)
Quarter: 2009Q4

REPORT INFORMATION
  Report Type: 
  Country: None (occurrence: None)
  Receive Date: 20091009
  Receipt Date: 20090930
  Transmission Date: 20100525
  Serious: Yes (Disabling)
  Sender: FDA-Public Use
  Company Number: ADR34632009

PATIENT
  Age: 34 Year
  Sex: Female

DRUGS (1)
  1. CIPROFLOXACIN [Suspect]
     Indication: URINARY TRACT INFECTION
     Dosage: 2 G ORAL
     Route: 048
     Dates: start: 20060724

REACTIONS (3)
  - PHOTOPSIA [None]
  - VERTIGO [None]
  - VISUAL IMPAIRMENT [None]
